FAERS Safety Report 19840017 (Version 1)
Quarter: 2021Q3

REPORT INFORMATION
  Report Type: Spontaneous
  Country: US (occurrence: US)
  Receive Date: 20210914
  Receipt Date: 20210914
  Transmission Date: 20211014
  Serious: No
  Sender: FDA-Public Use
  Company Number: None

PATIENT
  Age: 58 Year
  Sex: Male
  Weight: 89 kg

DRUGS (1)
  1. LISINOPRIL (LISINOPRIL 10MG TAB) [Suspect]
     Active Substance: LISINOPRIL
     Indication: HYPERTENSION
     Route: 048
     Dates: start: 20210527, end: 20210531

REACTIONS (6)
  - Hiccups [None]
  - Acute kidney injury [None]
  - Angioedema [None]
  - Haemodialysis [None]
  - Back pain [None]
  - Abdominal distension [None]

NARRATIVE: CASE EVENT DATE: 20210531
